FAERS Safety Report 21505298 (Version 6)
Quarter: 2023Q1

REPORT INFORMATION
  Report Type: Spontaneous
  Country: RO (occurrence: RO)
  Receive Date: 20221026
  Receipt Date: 20230109
  Transmission Date: 20230418
  Serious: Yes (Other)
  Sender: FDA-Public Use
  Company Number: RO-BRISTOL-MYERS SQUIBB COMPANY-2022-125452

PATIENT
  Age: 43 Year
  Sex: Male

DRUGS (6)
  1. OPDIVO [Suspect]
     Active Substance: NIVOLUMAB
     Indication: Transitional cell carcinoma
     Dates: start: 20220314
  2. OPDIVO [Suspect]
     Active Substance: NIVOLUMAB
     Route: 042
     Dates: start: 20220405, end: 20220624
  3. OPDIVO [Suspect]
     Active Substance: NIVOLUMAB
     Route: 042
     Dates: start: 20220712, end: 20221006
  4. YERVOY [Suspect]
     Active Substance: IPILIMUMAB
     Indication: Transitional cell carcinoma
     Dates: start: 20220314
  5. GEMCITABINE [Suspect]
     Active Substance: GEMCITABINE
     Indication: Product used for unknown indication
     Dosage: GEMCITABINE 1000MG/M2, IVP, DAY 1 AND 8, AT 21 DAYS
     Route: 042
     Dates: start: 20220405, end: 20220624
  6. CISPLATIN [Suspect]
     Active Substance: CISPLATIN
     Indication: Product used for unknown indication
     Dosage: 70MG/M2, IVP, AT 21 DAYS
     Route: 042
     Dates: start: 20220405, end: 20220624

REACTIONS (18)
  - Syncope [Unknown]
  - Neutrophil count decreased [Unknown]
  - White blood cell disorder [Unknown]
  - Haemoptysis [Unknown]
  - Paraesthesia [Unknown]
  - Hyperhidrosis [Unknown]
  - Dyspnoea [Unknown]
  - Chest pain [Unknown]
  - Blood lactate dehydrogenase increased [Unknown]
  - Alanine aminotransferase increased [Unknown]
  - Aspartate aminotransferase increased [Unknown]
  - Off label use [Unknown]
  - Bladder cancer [Recovered/Resolved]
  - Lymphadenopathy mediastinal [Unknown]
  - Abdominal lymphadenopathy [Unknown]
  - Retroperitoneal lymphadenopathy [Unknown]
  - Myalgia [Unknown]
  - Pruritus [Unknown]

NARRATIVE: CASE EVENT DATE: 20220405
